FAERS Safety Report 16795535 (Version 1)
Quarter: 2019Q4

REPORT INFORMATION
  Report Type: Spontaneous
  Country: US (occurrence: US)
  Receive Date: 20190910
  Receipt Date: 20190910
  Transmission Date: 20200122
  Serious: Yes (Hospitalization)
  Sender: FDA-Public Use
  Company Number: None

PATIENT
  Age: 72 Year
  Sex: Female

DRUGS (8)
  1. BOTOX [Concomitant]
     Active Substance: ONABOTULINUMTOXINA
  2. ALLOPURINOL. [Concomitant]
     Active Substance: ALLOPURINOL
  3. STELARA [Suspect]
     Active Substance: USTEKINUMAB
     Indication: CROHN^S DISEASE
     Dosage: ?          OTHER FREQUENCY:Q4WKS;?
     Route: 058
     Dates: start: 20171101
  4. PREDNISONE. [Concomitant]
     Active Substance: PREDNISONE
  5. CEPHALEXIN. [Concomitant]
     Active Substance: CEPHALEXIN
  6. SINGULAIR [Concomitant]
     Active Substance: MONTELUKAST SODIUM
  7. AZATHIOPRINE. [Concomitant]
     Active Substance: AZATHIOPRINE
  8. UCERIS [Concomitant]
     Active Substance: BUDESONIDE

REACTIONS (1)
  - Condition aggravated [None]

NARRATIVE: CASE EVENT DATE: 20190910
